FAERS Safety Report 25025513 (Version 1)
Quarter: 2025Q1

REPORT INFORMATION
  Report Type: Spontaneous
  Country: CN (occurrence: CN)
  Receive Date: 20250228
  Receipt Date: 20250228
  Transmission Date: 20250409
  Serious: Yes (Other)
  Sender: BEIGENE
  Company Number: CN-BEIGENE-BGN-2025-002812

PATIENT
  Age: 43 Year
  Weight: 70 kg

DRUGS (7)
  1. TISLELIZUMAB [Suspect]
     Active Substance: TISLELIZUMAB
     Indication: Salivary gland neoplasm
  2. CISPLATIN [Suspect]
     Active Substance: CISPLATIN
     Indication: Salivary gland neoplasm
  3. CISPLATIN [Suspect]
     Active Substance: CISPLATIN
     Dosage: 40 MILLIGRAM, Q3WK D1-3
  4. PACLITAXEL [Suspect]
     Active Substance: PACLITAXEL
     Indication: Salivary gland neoplasm
  5. PACLITAXEL [Suspect]
     Active Substance: PACLITAXEL
     Dosage: 360 MILLIGRAM, Q3WK
  6. CETUXIMAB [Suspect]
     Active Substance: CETUXIMAB
     Indication: Salivary gland neoplasm
  7. CETUXIMAB [Suspect]
     Active Substance: CETUXIMAB
     Dosage: 0.9 GRAM, Q3WK D0

REACTIONS (1)
  - Hepatic enzyme increased [Recovering/Resolving]
